FAERS Safety Report 9288398 (Version 2)
Quarter: 2013Q2

REPORT INFORMATION
  Report Type: Spontaneous
  Country: US (occurrence: US)
  Receive Date: 20130514
  Receipt Date: 20130604
  Transmission Date: 20140414
  Serious: Yes (Other)
  Sender: FDA-Public Use
  Company Number: US-PFIZER INC-2013092339

PATIENT
  Age: 11 Year
  Sex: Male
  Weight: 43.1 kg

DRUGS (3)
  1. GENOTROPIN [Suspect]
     Indication: DWARFISM
     Dosage: 4 MG, 1X/DAY
     Route: 058
     Dates: start: 2008
  2. GENOTROPIN [Suspect]
     Indication: GROWTH HORMONE DEFICIENCY
  3. GENOTROPIN [Suspect]
     Indication: DWARFISM

REACTIONS (1)
  - Blood urine present [Not Recovered/Not Resolved]
